FAERS Safety Report 4332342-2 (Version None)
Quarter: 2004Q2

REPORT INFORMATION
  Report Type: 
  Country: None (occurrence: None)
  Receive Date: 20040401
  Receipt Date: 20040322
  Transmission Date: 20050107
  Serious: Yes (Disabling)
  Sender: FDA-Public Use
  Company Number: 2004GB00698

PATIENT
  Age: 72 Year
  Sex: Male
  Weight: 95.25 kg

DRUGS (4)
  1. CRESTOR [Suspect]
     Indication: HYPERCHOLESTEROLAEMIA
     Dosage: 10 MG DAILY PO
     Route: 048
     Dates: start: 20040209, end: 20040214
  2. ASPIRIN [Concomitant]
  3. OMEPRAZOLE [Concomitant]
  4. TAMSULOSIN [Concomitant]

REACTIONS (2)
  - DYSPNOEA [None]
  - HYPOAESTHESIA [None]
